FAERS Safety Report 21463307 (Version 1)
Quarter: 2022Q4

REPORT INFORMATION
  Report Type: Spontaneous
  Country: AT (occurrence: AT)
  Receive Date: 20221017
  Receipt Date: 20221017
  Transmission Date: 20230113
  Serious: Yes (Other)
  Sender: FDA-Public Use
  Company Number: AT-NOVARTISPH-NVSC2022AT198955

PATIENT
  Age: 47 Year
  Sex: Female

DRUGS (6)
  1. MAYZENT [Suspect]
     Active Substance: SIPONIMOD
     Indication: Multiple sclerosis
     Dosage: 4 DOSAGE FORM, QD, (4-0-0)
     Route: 065
     Dates: start: 20220507, end: 20220521
  2. MAYZENT [Suspect]
     Active Substance: SIPONIMOD
     Dosage: 4 DOSAGE FORM, QD, (4-0-0)
     Route: 048
     Dates: start: 20220607, end: 20220828
  3. OLEOVIT [Concomitant]
     Indication: Product used for unknown indication
     Dosage: UNK, QW, (30 GTT)
     Route: 048
  4. PANTOPRAZOLE SODIUM [Concomitant]
     Active Substance: PANTOPRAZOLE SODIUM
     Indication: Product used for unknown indication
     Dosage: UNK UNK, QD
     Route: 048
  5. TRAZODONE HYDROCHLORIDE [Concomitant]
     Active Substance: TRAZODONE HYDROCHLORIDE
     Indication: Depression
     Dosage: 75 MG, (0-0-2/3)
     Route: 048
     Dates: start: 20220601
  6. SERTRALINE HYDROCHLORIDE [Concomitant]
     Active Substance: SERTRALINE HYDROCHLORIDE
     Indication: Depression
     Dosage: 50 MG, (1/2-0-0)
     Route: 048
     Dates: start: 20220601

REACTIONS (4)
  - Oedema peripheral [Recovering/Resolving]
  - Infection [Unknown]
  - Lymphoedema [Not Recovered/Not Resolved]
  - Gait disturbance [Not Recovered/Not Resolved]

NARRATIVE: CASE EVENT DATE: 20220701
